FAERS Safety Report 20192235 (Version 2)
Quarter: 2022Q1

REPORT INFORMATION
  Report Type: Spontaneous
  Country: PL (occurrence: PL)
  Receive Date: 20211216
  Receipt Date: 20220208
  Transmission Date: 20220423
  Serious: Yes (Hospitalization, Other)
  Sender: FDA-Public Use
  Company Number: PL-002147023-NVSC2021PL267813

PATIENT
  Age: 71 Year
  Sex: Male

DRUGS (45)
  1. ATORVASTATIN [Suspect]
     Active Substance: ATORVASTATIN
     Indication: Product used for unknown indication
     Dosage: 10 MILLIGRAM, ONCE A DAY
     Route: 065
  2. ALLOPURINOL [Suspect]
     Active Substance: ALLOPURINOL
     Indication: Product used for unknown indication
     Dosage: UNK
     Route: 065
  3. CARVEDILOL [Suspect]
     Active Substance: CARVEDILOL
     Indication: Product used for unknown indication
     Dosage: 12.5 MILLIGRAM, ONCE A DAY (6.25 MG, BID)
     Route: 065
  4. CARVEDILOL [Suspect]
     Active Substance: CARVEDILOL
     Dosage: 6.25 MILLIGRAM, ONCE A DAY
     Route: 065
     Dates: start: 201804
  5. CARVEDILOL [Suspect]
     Active Substance: CARVEDILOL
     Dosage: 6.25 MILLIGRAM, ONCE A DAY
     Route: 065
     Dates: start: 201905
  6. CARVEDILOL [Suspect]
     Active Substance: CARVEDILOL
     Dosage: 13 MILLIGRAM, ONCE A DAY
     Route: 065
     Dates: start: 202103
  7. CARVEDILOL [Suspect]
     Active Substance: CARVEDILOL
     Dosage: 13 MILLIGRAM, ONCE A DAY
     Route: 065
     Dates: start: 202101
  8. CARVEDILOL [Suspect]
     Active Substance: CARVEDILOL
     Dosage: 13 MILLIGRAM, ONCE A DAY
     Route: 065
     Dates: start: 202107
  9. CARVEDILOL [Suspect]
     Active Substance: CARVEDILOL
     Dosage: 13 MILLIGRAM, ONCE A DAY
     Route: 065
     Dates: start: 202109
  10. FUROSEMIDE [Suspect]
     Active Substance: FUROSEMIDE
     Indication: Product used for unknown indication
     Dosage: 40 MILLIGRAM, ONCE A DAY
     Route: 065
  11. FUROSEMIDE [Suspect]
     Active Substance: FUROSEMIDE
     Dosage: 120 MILLIGRAM, ONCE A DAY
     Route: 065
     Dates: start: 201804
  12. FUROSEMIDE [Suspect]
     Active Substance: FUROSEMIDE
     Dosage: 200 MILLIGRAM, ONCE A DAY
     Route: 065
     Dates: start: 201905
  13. FUROSEMIDE [Suspect]
     Active Substance: FUROSEMIDE
     Dosage: 160 MILLIGRAM, ONCE A DAY
     Route: 065
     Dates: start: 202101
  14. FUROSEMIDE [Suspect]
     Active Substance: FUROSEMIDE
     Dosage: 80 MILLIGRAM, ONCE A DAY
     Route: 065
     Dates: start: 202103
  15. FUROSEMIDE [Suspect]
     Active Substance: FUROSEMIDE
     Dosage: 40 MILLIGRAM, ONCE A DAY
     Route: 065
     Dates: start: 202107
  16. FUROSEMIDE [Suspect]
     Active Substance: FUROSEMIDE
     Dosage: 40 MILLIGRAM, ONCE A DAY
     Route: 065
     Dates: start: 202109
  17. SILDENAFIL [Suspect]
     Active Substance: SILDENAFIL
     Indication: Product used for unknown indication
     Dosage: 50 MILLIGRAM
     Route: 065
     Dates: start: 201804
  18. SILDENAFIL [Suspect]
     Active Substance: SILDENAFIL
     Dosage: 50 MILLIGRAM
     Route: 065
     Dates: start: 201905
  19. SILDENAFIL [Suspect]
     Active Substance: SILDENAFIL
     Dosage: 50 MILLIGRAM
     Route: 065
     Dates: start: 202101
  20. SILDENAFIL [Suspect]
     Active Substance: SILDENAFIL
     Dosage: 50 MILLIGRAM
     Route: 065
     Dates: start: 202103
  21. EMPAGLIFLOZIN [Suspect]
     Active Substance: EMPAGLIFLOZIN
     Indication: Product used for unknown indication
     Dosage: 10 MILLIGRAM, ONCE A DAY
     Route: 065
     Dates: start: 201804
  22. HYDROCHLOROTHIAZIDE [Suspect]
     Active Substance: HYDROCHLOROTHIAZIDE
     Indication: Product used for unknown indication
     Dosage: 25 MILLIGRAM, ONCE A DAY
     Route: 065
     Dates: start: 201804
  23. HYDROCHLOROTHIAZIDE [Suspect]
     Active Substance: HYDROCHLOROTHIAZIDE
     Dosage: 25 MILLIGRAM, ONCE A DAY
     Route: 065
     Dates: start: 201905
  24. HYDROCHLOROTHIAZIDE [Suspect]
     Active Substance: HYDROCHLOROTHIAZIDE
     Dosage: 25 MILLIGRAM, ONCE A DAY
     Route: 065
     Dates: start: 202101
  25. LEVOTHYROXINE [Suspect]
     Active Substance: LEVOTHYROXINE
     Indication: Product used for unknown indication
     Dosage: UNK UNK, ONCE A DAY (N50)
     Route: 065
  26. SACUBITRIL\VALSARTAN [Suspect]
     Active Substance: SACUBITRIL\VALSARTAN
     Indication: Cardiac failure
     Dosage: 1 DOSAGE FORM, ONCE A DAY, 0.5 DF, BID (49MG/51MG)
     Route: 065
  27. SACUBITRIL\VALSARTAN [Suspect]
     Active Substance: SACUBITRIL\VALSARTAN
     Dosage: 100 MILLIGRAM, ONCE A DAY
     Route: 065
     Dates: start: 201804
  28. SACUBITRIL\VALSARTAN [Suspect]
     Active Substance: SACUBITRIL\VALSARTAN
     Dosage: 100 MILLIGRAM, ONCE A DAY
     Route: 065
     Dates: start: 201905
  29. SACUBITRIL\VALSARTAN [Suspect]
     Active Substance: SACUBITRIL\VALSARTAN
     Dosage: 200 MILLIGRAM, ONCE A DAY
     Route: 065
     Dates: start: 202101
  30. SACUBITRIL\VALSARTAN [Suspect]
     Active Substance: SACUBITRIL\VALSARTAN
     Dosage: 200 MILLIGRAM, ONCE A DAY
     Route: 065
     Dates: start: 202103
  31. SACUBITRIL\VALSARTAN [Suspect]
     Active Substance: SACUBITRIL\VALSARTAN
     Dosage: 100 MILLIGRAM, ONCE A DAY
     Route: 065
     Dates: start: 202107
  32. SACUBITRIL\VALSARTAN [Suspect]
     Active Substance: SACUBITRIL\VALSARTAN
     Dosage: 100 MILLIGRAM, ONCE A DAY
     Route: 065
     Dates: start: 202109
  33. SACUBITRIL\VALSARTAN [Suspect]
     Active Substance: SACUBITRIL\VALSARTAN
     Dosage: 100 MILLIGRAM, ONCE A DAY
     Route: 065
     Dates: start: 202101
  34. SPIRONOLACTONE [Suspect]
     Active Substance: SPIRONOLACTONE
     Indication: Product used for unknown indication
     Dosage: 100 MILLIGRAM, ONCE A DAY
     Route: 065
     Dates: start: 201804
  35. SPIRONOLACTONE [Suspect]
     Active Substance: SPIRONOLACTONE
     Dosage: 100 MILLIGRAM, ONCE A DAY
     Route: 065
     Dates: start: 201905
  36. SPIRONOLACTONE [Suspect]
     Active Substance: SPIRONOLACTONE
     Dosage: 100 MILLIGRAM, ONCE A DAY
     Route: 065
     Dates: start: 202101
  37. SPIRONOLACTONE [Suspect]
     Active Substance: SPIRONOLACTONE
     Dosage: 50 MILLIGRAM, ONCE A DAY
     Route: 065
     Dates: start: 202103
  38. DAPAGLIFLOZIN [Suspect]
     Active Substance: DAPAGLIFLOZIN
     Indication: Product used for unknown indication
     Dosage: 10 MILLIGRAM, ONCE A DAY
     Route: 065
  39. DAPAGLIFLOZIN [Suspect]
     Active Substance: DAPAGLIFLOZIN
     Dosage: 10 MILLIGRAM, ONCE A DAY
     Route: 065
     Dates: start: 202107
  40. DAPAGLIFLOZIN [Suspect]
     Active Substance: DAPAGLIFLOZIN
     Dosage: 10 MILLIGRAM, ONCE A DAY
     Route: 065
     Dates: start: 202109
  41. APIXABAN [Suspect]
     Active Substance: APIXABAN
     Indication: Product used for unknown indication
     Dosage: 10 MILLIGRAM, ONCE A DAY (5 MG, BID)
     Route: 065
  42. DIGOXIN [Suspect]
     Active Substance: DIGOXIN
     Indication: Product used for unknown indication
     Dosage: 0.1 MILLIGRAM, ONCE A DAY
     Route: 065
  43. TORSEMIDE [Suspect]
     Active Substance: TORSEMIDE
     Indication: Product used for unknown indication
     Dosage: 10 MILLIGRAM, ONCE A DAY (1 TABLET IN THE EVENING)
     Route: 065
  44. TORSEMIDE [Suspect]
     Active Substance: TORSEMIDE
     Dosage: 5 MILLIGRAM, ONCE A DAY
     Route: 065
     Dates: start: 202107
  45. TORSEMIDE [Suspect]
     Active Substance: TORSEMIDE
     Dosage: 10 MILLIGRAM, ONCE A DAY
     Route: 065
     Dates: start: 202109

REACTIONS (7)
  - Cardiac failure [Unknown]
  - Acute kidney injury [Unknown]
  - Glomerular filtration rate abnormal [Unknown]
  - Congestive cardiomyopathy [Unknown]
  - Wrong technique in product usage process [Unknown]
  - Lung disorder [Unknown]
  - N-terminal prohormone brain natriuretic peptide increased [Unknown]

NARRATIVE: CASE EVENT DATE: 20210301
